FAERS Safety Report 7002635-9 (Version None)
Quarter: 2010Q3

REPORT INFORMATION
  Report Type: 
  Country: None (occurrence: None)
  Receive Date: 20100920
  Receipt Date: 20080421
  Transmission Date: 20110219
  Serious: Yes (Other)
  Sender: FDA-Public Use
  Company Number: US-ASTRAZENECA-2007UW25438

PATIENT
  Age: 499 Month
  Sex: Female
  Weight: 52.2 kg

DRUGS (27)
  1. SEROQUEL [Suspect]
     Indication: BIPOLAR DISORDER
     Route: 048
     Dates: start: 19990101
  2. SEROQUEL [Suspect]
     Indication: SCHIZOPHRENIA
     Route: 048
     Dates: start: 19990101
  3. SEROQUEL [Suspect]
     Indication: SOMNOLENCE
     Route: 048
     Dates: start: 19990101
  4. SEROQUEL [Suspect]
     Dosage: 100 MG TO 300 MG
     Route: 048
     Dates: start: 20000125
  5. SEROQUEL [Suspect]
     Dosage: 100 MG TO 300 MG
     Route: 048
     Dates: start: 20000125
  6. SEROQUEL [Suspect]
     Dosage: 100 MG TO 300 MG
     Route: 048
     Dates: start: 20000125
  7. SERZONE [Concomitant]
     Indication: DEPRESSION
     Dosage: 100 MG TO 300 MG
     Dates: start: 20000119
  8. TRAZODONE HCL [Concomitant]
     Indication: SLEEP DISORDER
     Dosage: 50 MG TO 300 MG
     Dates: start: 20000119
  9. NEURONTIN [Concomitant]
     Dosage: 300 MG TO 900 MG
     Dates: start: 20000125
  10. TEGRETOL [Concomitant]
     Indication: AFFECTIVE DISORDER
     Dates: start: 20000119
  11. WELLBUTRIN SR [Concomitant]
     Dosage: 150 MG DISPENSED
     Dates: start: 20000504
  12. RISPERDAL [Concomitant]
     Indication: AFFECTIVE DISORDER
     Dosage: 1 MG TO 2 MG
     Dates: start: 20000119
  13. RISPERDAL [Concomitant]
     Indication: SLEEP DISORDER
     Dosage: 1 MG TO 2 MG
     Dates: start: 20000119
  14. RISPERDAL [Concomitant]
     Indication: THINKING ABNORMAL
     Dosage: 1 MG TO 2 MG
     Dates: start: 20000119
  15. ROXICET [Concomitant]
     Indication: NECK PAIN
     Dosage: 5/325 MG AS REQUIRED EVERY 4 HOURS
     Dates: start: 19991230
  16. FLEXERIL [Concomitant]
     Indication: MUSCLE SPASMS
     Dates: start: 20000119
  17. KLONOPIN [Concomitant]
     Indication: ANXIETY
     Dosage: 0.5 MG TO 3 MG
     Dates: start: 20000119
  18. TEMAZEPAM [Concomitant]
     Dosage: 30 MG DISPENSED
     Dates: start: 20000517
  19. ALPRAZOLAM [Concomitant]
     Dosage: 5 MG DISPENSED
     Dates: start: 20000517
  20. ZOLOFT [Concomitant]
     Dosage: 100 MG DISPENSED
     Dates: start: 20060816
  21. NEXIUM [Concomitant]
     Dosage: 40 MG DISPENSED
     Dates: start: 20061018
  22. MORPHINE SULFATE [Concomitant]
     Dosage: 15 MG TO 30 MG DISPENSED
     Dates: start: 20060828
  23. HYOSCYAMINE [Concomitant]
     Dosage: 0.375 MG DISPENSED
     Dates: start: 20061003
  24. CARISOPRODOL [Concomitant]
     Dosage: 350 MG DISPENSED
     Dates: start: 20061006
  25. ACTONEL [Concomitant]
     Dosage: 35 MG DISPENSED
     Dates: start: 20061009
  26. AMITRIPTYLINE HCL [Concomitant]
     Dosage: 25 MG DISPENSED
     Dates: start: 20061207
  27. LORAZEPAM [Concomitant]
     Dosage: 1 MG DISPENSED
     Dates: start: 20061207

REACTIONS (1)
  - PANCREATITIS [None]
